FAERS Safety Report 5277322-8 (Version None)
Quarter: 2007Q1

REPORT INFORMATION
  Report Type: 
  Country: None (occurrence: None)
  Receive Date: 20070327
  Receipt Date: 20070316
  Transmission Date: 20070707
  Serious: Yes (Life-Threatening, Hospitalization)
  Sender: FDA-Public Use
  Company Number: CH-MERCK-0703CHE00010

PATIENT
  Age: 48 Year
  Sex: Female

DRUGS (9)
  1. PRIMAXIN [Suspect]
     Indication: PNEUMONIA
     Route: 041
     Dates: start: 20070205, end: 20070206
  2. RIVOTRIL [Suspect]
     Indication: EPILEPSY
     Route: 048
     Dates: start: 20061224
  3. TAZOBAC [Suspect]
     Indication: PNEUMONIA
     Route: 041
     Dates: start: 20070205
  4. MORPHINE [Concomitant]
     Route: 048
     Dates: start: 20070202, end: 20070203
  5. NEXIUM [Concomitant]
     Route: 048
  6. ENOXAPARIN SODIUM [Concomitant]
     Route: 051
  7. BECOZYME [Concomitant]
     Route: 048
  8. BENERVA [Concomitant]
     Route: 048
  9. FLAGYL [Concomitant]
     Route: 067

REACTIONS (1)
  - EPILEPSY [None]
